FAERS Safety Report 20046949 (Version 1)
Quarter: 2021Q4

REPORT INFORMATION
  Report Type: Spontaneous
  Country: ES (occurrence: ES)
  Receive Date: 20211109
  Receipt Date: 20211109
  Transmission Date: 20220303
  Serious: Yes (Other)
  Sender: FDA-Public Use
  Company Number: None

PATIENT
  Age: 68 Year
  Sex: Male

DRUGS (12)
  1. CISPLATIN [Suspect]
     Active Substance: CISPLATIN
     Indication: Product used for unknown indication
     Route: 042
     Dates: start: 20210203, end: 20210226
  2. PEMETREXED [Suspect]
     Active Substance: PEMETREXED
     Indication: Product used for unknown indication
     Route: 042
     Dates: start: 20210203
  3. KEYTRUDA [Suspect]
     Active Substance: PEMBROLIZUMAB
     Indication: Product used for unknown indication
     Route: 042
     Dates: start: 20210203, end: 20210226
  4. Metamizole Normon [Concomitant]
     Dosage: 0.4 G / ML SOLUTION FOR INJECTION AND FOR INFUSION EFG 5?AMPOULES OF 5 ML
     Route: 048
     Dates: start: 20210112
  5. UMECLIDINIUM BROMIDE\VILANTEROL TRIFENATATE [Concomitant]
     Active Substance: UMECLIDINIUM BROMIDE\VILANTEROL TRIFENATATE
     Dosage: 55 MICROGRAMS / 22 MICROGRAMS POWDER FOR INHALATION?(SINGLE DOSE),1 INHALER OF 30 DOSES
     Route: 055
     Dates: start: 20201130
  6. ZOLICO [Concomitant]
     Dosage: 400 MICROGRAMS TABLETS, 28 TABLETS
     Route: 048
     Dates: start: 20210112
  7. CROMATONBIC B12 [Concomitant]
     Dosage: 1000 INJECTION, 8 AMPOULES OF 1 ML
     Route: 030
     Dates: start: 20210112
  8. PRIMPERAN [Concomitant]
     Active Substance: METOCLOPRAMIDE HYDROCHLORIDE
     Dosage: 1MG / ML ORAL SOLUTION, 1 VIAL OF 200 ML
     Route: 048
     Dates: start: 20210219
  9. Pregabalin normon [Concomitant]
     Dosage: 50 MG HARD CAPSULES EFG, 56 CAPSULES (ALUMINUM BLISTER /?PVC-PVDC 60)
     Route: 048
     Dates: start: 20201219
  10. PARACETAMOL KERN PHARMA [Concomitant]
     Dosage: 1 G EFFERVESCENT TABLETS EFG, 40 TABLETS
     Route: 048
     Dates: start: 20201130
  11. Fentanyl matrix normon [Concomitant]
     Dosage: 25 MICROGRAMS / H EFG TRANSDERMAL PATCHES, 5 PATCHES
     Route: 062
     Dates: start: 20210121
  12. MORPHINE [Concomitant]
     Active Substance: MORPHINE
     Dosage: 12 TABLETS
     Route: 048
     Dates: start: 20210121

REACTIONS (1)
  - Hepatitis acute [Recovering/Resolving]

NARRATIVE: CASE EVENT DATE: 20210318
